FAERS Safety Report 13013991 (Version 2)
Quarter: 2020Q4

REPORT INFORMATION
  Report Type: Report from Study
  Country: AU (occurrence: AU)
  Receive Date: 20161209
  Receipt Date: 20201030
  Transmission Date: 20210113
  Serious: Yes (Hospitalization, Other)
  Sender: FDA-Public Use
  Company Number: AU-REGENERON PHARMACEUTICALS, INC.-2016-24749

PATIENT

DRUGS (5)
  1. EYLEA [Suspect]
     Active Substance: AFLIBERCEPT
     Dosage: 2 MG, LAST INJECTION
     Route: 031
     Dates: start: 20161103
  2. POVIDONE-IODINE. [Suspect]
     Active Substance: POVIDONE-IODINE
     Indication: PRODUCT USED FOR UNKNOWN INDICATION
  3. IRBESARTAN. [Concomitant]
     Active Substance: IRBESARTAN
     Dosage: 300 MG, UNK
  4. IRBESARTAN. [Concomitant]
     Active Substance: IRBESARTAN
     Indication: PRODUCT USED FOR UNKNOWN INDICATION
     Dosage: 150 MG, UNK
  5. EYLEA [Suspect]
     Active Substance: AFLIBERCEPT
     Indication: NEOVASCULAR AGE-RELATED MACULAR DEGENERATION
     Dosage: 2 MG, Q6WK
     Route: 031
     Dates: start: 20160701

REACTIONS (10)
  - Dizziness [Recovered/Resolved]
  - Eye irritation [Recovered/Resolved]
  - Staphylococcal infection [Recovered/Resolved]
  - Blood pressure increased [Recovering/Resolving]
  - Visual impairment [Recovered/Resolved]
  - Product use issue [Unknown]
  - Head and neck cancer [Recovering/Resolving]
  - Cerebrovascular accident [Recovering/Resolving]
  - Product use issue [Recovered/Resolved]
  - Unevaluable event [Recovered/Resolved]

NARRATIVE: CASE EVENT DATE: 20161103
